FAERS Safety Report 9212574 (Version 4)
Quarter: 2014Q1

REPORT INFORMATION
  Report Type: Spontaneous
  Country: US (occurrence: US)
  Receive Date: 20130405
  Receipt Date: 20140120
  Transmission Date: 20141002
  Serious: Yes (Hospitalization, Other)
  Sender: FDA-Public Use
  Company Number: US-BIOGENIDEC-2013BI029699

PATIENT
  Age: 59 Year
  Sex: Female
  Weight: 64 kg

DRUGS (15)
  1. AVONEX [Suspect]
     Indication: MULTIPLE SCLEROSIS
     Route: 030
     Dates: start: 19981101
  2. AVONEX [Suspect]
     Indication: MULTIPLE SCLEROSIS
     Route: 030
     Dates: start: 2003
  3. AVONEX [Suspect]
     Indication: MULTIPLE SCLEROSIS
     Route: 030
     Dates: start: 20120118
  4. ASPIR-81 [Concomitant]
     Route: 048
  5. ATENOLOL [Concomitant]
     Route: 048
     Dates: start: 20120717
  6. IMURAN [Concomitant]
     Route: 048
     Dates: start: 20121228
  7. MELATONIN [Concomitant]
     Route: 048
  8. OCUVITE LUTEIN + ZEAXANTHIN [Concomitant]
     Route: 048
     Dates: start: 20121218
  9. OS-CAL 500+D [Concomitant]
     Route: 048
     Dates: start: 20120314
  10. PROZAC [Concomitant]
     Route: 048
     Dates: start: 20120314
  11. SIMVASTATIN [Concomitant]
     Route: 048
     Dates: start: 20121218
  12. VITAMIN B12 [Concomitant]
     Route: 048
  13. VITAMIN C [Concomitant]
     Route: 048
  14. VITAMIN D [Concomitant]
     Route: 048
  15. PREDNISONE [Concomitant]

REACTIONS (12)
  - Renal failure acute [Recovered/Resolved]
  - Hallucination [Recovered/Resolved]
  - Dehydration [Recovered/Resolved]
  - Dry mouth [Recovered/Resolved]
  - Cholecystectomy [Unknown]
  - Memory impairment [Recovered/Resolved]
  - Blood urea abnormal [Recovered/Resolved]
  - Blood creatinine abnormal [Recovered/Resolved]
  - Diarrhoea [Recovered/Resolved]
  - Fatigue [Not Recovered/Not Resolved]
  - Pollakiuria [Recovered/Resolved]
  - Micturition urgency [Recovered/Resolved]
